FAERS Safety Report 9117912 (Version 2)
Quarter: 2013Q1

REPORT INFORMATION
  Report Type: Spontaneous
  Country: CN (occurrence: CN)
  Receive Date: 20130208
  Receipt Date: 20130226
  Transmission Date: 20140127
  Serious: Yes (Death, Hospitalization)
  Sender: FDA-Public Use
  Company Number: CN-ASTRAZENECA-2013SE08562

PATIENT
  Sex: Male

DRUGS (1)
  1. CRESTOR [Suspect]
     Indication: LIPIDS ABNORMAL
     Route: 048
     Dates: start: 2010

REACTIONS (6)
  - Myocardial infarction [Fatal]
  - Lung infection [Fatal]
  - Lipids increased [Fatal]
  - Fall [Unknown]
  - Syncope [Unknown]
  - Drug ineffective [Fatal]
